FAERS Safety Report 7350528-X (Version None)
Quarter: 2011Q1

REPORT INFORMATION
  Report Type: 
  Country: None (occurrence: None)
  Receive Date: 20110303
  Receipt Date: 20110222
  Transmission Date: 20110831
  Serious: Yes (Other)
  Sender: FDA-Public Use
  Company Number: 2011MA001741

PATIENT
  Age: 68 Year
  Sex: Male

DRUGS (6)
  1. GABAPENTIN [Suspect]
     Indication: NEURALGIA
     Dosage: 600 MG;TID;PO
     Route: 048
     Dates: start: 20070701, end: 20110210
  2. DEXAMETHASONE [Concomitant]
  3. MORPHINE [Concomitant]
  4. FINASTERIDE [Concomitant]
  5. LENALIDOMIDE (NO PREF. NAME) [Suspect]
     Indication: MYELOMA RECURRENCE
     Dosage: 25 MG;QD;PO
     Route: 048
     Dates: start: 20091001, end: 20100902
  6. CLEXANE [Concomitant]

REACTIONS (2)
  - IDIOPATHIC THROMBOCYTOPENIC PURPURA [None]
  - NO THERAPEUTIC RESPONSE [None]
